FAERS Safety Report 8018416-3 (Version None)
Quarter: 2012Q1

REPORT INFORMATION
  Report Type: 
  Country: None (occurrence: None)
  Receive Date: 20120103
  Receipt Date: 20111228
  Transmission Date: 20120608
  Serious: Yes (Other)
  Sender: FDA-Public Use
  Company Number: US-PFIZER INC-2011273751

PATIENT
  Sex: Female

DRUGS (2)
  1. NEURONTIN [Suspect]
     Indication: NEURALGIA
     Dosage: 100 MG, 2X/DAY
  2. NEURONTIN [Suspect]
     Indication: NERVE INJURY

REACTIONS (3)
  - CYSTITIS [None]
  - WITHDRAWAL SYNDROME [None]
  - MALAISE [None]
